FAERS Safety Report 5835740-0 (Version None)
Quarter: 2008Q3

REPORT INFORMATION
  Report Type: 
  Country: None (occurrence: None)
  Receive Date: 20080806
  Receipt Date: 20080728
  Transmission Date: 20090109
  Serious: Yes (Hospitalization)
  Sender: FDA-Public Use
  Company Number: FR-ROCHE-578481

PATIENT
  Sex: Male

DRUGS (10)
  1. ROCEPHIN [Suspect]
     Indication: DRUG USE FOR UNKNOWN INDICATION
     Dosage: DOSE FORM REPORTED AS INJECTABLE SOLUTION.
     Route: 030
     Dates: start: 20080519, end: 20080522
  2. VOLTAREN [Suspect]
     Indication: DRUG USE FOR UNKNOWN INDICATION
     Route: 054
     Dates: start: 20080505, end: 20080526
  3. PYOSTACINE [Concomitant]
     Dates: start: 20080513, end: 20080519
  4. GLUCOPHAGE [Concomitant]
  5. AMARYL [Concomitant]
  6. GLUCOR [Concomitant]
  7. RAMIPRIL [Concomitant]
  8. MONO-TILDIEM [Concomitant]
     Dosage: DRUG REPORTED AS: MONOTILDIEM.
  9. FLUDEX [Concomitant]
  10. INEGY [Concomitant]

REACTIONS (3)
  - ECZEMA [None]
  - ECZEMA INFECTED [None]
  - RASH PAPULAR [None]
